FAERS Safety Report 16180433 (Version 2)
Quarter: 2019Q4

REPORT INFORMATION
  Report Type: Spontaneous
  Country: US (occurrence: US)
  Receive Date: 20190410
  Receipt Date: 20191014
  Transmission Date: 20200122
  Serious: No
  Sender: FDA-Public Use
  Company Number: US-SA-2019SA099220

PATIENT
  Age: 23 Year
  Sex: Female

DRUGS (1)
  1. DUPIXENT [Suspect]
     Active Substance: DUPILUMAB
     Indication: DERMATITIS ATOPIC
     Dosage: 300 MG, QOW
     Route: 058
     Dates: start: 20180730

REACTIONS (10)
  - Ocular hyperaemia [Unknown]
  - Pruritus [Unknown]
  - Ocular hyperaemia [Unknown]
  - Eye irritation [Unknown]
  - Skin irritation [Unknown]
  - Keratitis [Unknown]
  - Miliaria [Unknown]
  - Eye inflammation [Unknown]
  - Conjunctivitis [Unknown]
  - Photophobia [Unknown]

NARRATIVE: CASE EVENT DATE: 201909
